FAERS Safety Report 5396782-5 (Version None)
Quarter: 2007Q3

REPORT INFORMATION
  Report Type: 
  Country: None (occurrence: None)
  Receive Date: 20070725
  Receipt Date: 20070717
  Transmission Date: 20080115
  Serious: Yes (Other)
  Sender: FDA-Public Use
  Company Number: US-ROCHE-468648

PATIENT
  Age: 54 Year
  Sex: Female
  Weight: 55.8 kg

DRUGS (4)
  1. BONIVA [Suspect]
     Indication: OSTEOPOROSIS
     Route: 042
     Dates: start: 20060616, end: 20060616
  2. BONIVA [Suspect]
     Dosage: LOT MH68888 01; EXPIRATION DATE FEBRUARY 2008.
     Route: 042
     Dates: start: 20061205
  3. PULMICORT [Concomitant]
     Route: 055
     Dates: start: 20061127
  4. CITRACAL + D [Concomitant]

REACTIONS (18)
  - ABDOMINAL PAIN [None]
  - BURNING SENSATION [None]
  - CHILLS [None]
  - DIZZINESS [None]
  - FEELING HOT [None]
  - FLUSHING [None]
  - GENITAL BURNING SENSATION [None]
  - HYPERHIDROSIS [None]
  - HYPERSENSITIVITY [None]
  - HYPOAESTHESIA ORAL [None]
  - HYPOTENSION [None]
  - HYPOTHERMIA [None]
  - ILL-DEFINED DISORDER [None]
  - NAUSEA [None]
  - OEDEMA PERIPHERAL [None]
  - PARAESTHESIA [None]
  - PARAESTHESIA ORAL [None]
  - TREMOR [None]
